FAERS Safety Report 23992565 (Version 1)
Quarter: 2024Q2

REPORT INFORMATION
  Report Type: Spontaneous
  Country: US (occurrence: None)
  Receive Date: 20240620
  Receipt Date: 20240620
  Transmission Date: 20240716
  Serious: No
  Sender: FDA-Public Use
  Company Number: US-Encube-000780

PATIENT
  Age: 80 Year
  Sex: Female

DRUGS (1)
  1. CLOBETASOL PROPIONATE [Suspect]
     Active Substance: CLOBETASOL PROPIONATE
     Indication: Lichen sclerosus
     Dates: start: 20240604, end: 20240605

REACTIONS (2)
  - Application site irritation [Unknown]
  - Off label use [Unknown]

NARRATIVE: CASE EVENT DATE: 20240604
